FAERS Safety Report 7279017-8 (Version None)
Quarter: 2011Q1

REPORT INFORMATION
  Report Type: 
  Country: None (occurrence: None)
  Receive Date: 20110207
  Receipt Date: 20110127
  Transmission Date: 20110831
  Serious: Yes (Other)
  Sender: FDA-Public Use
  Company Number: PHHY2011FR02543

PATIENT
  Sex: Male

DRUGS (3)
  1. LEUPROLIDE ACETATE [Concomitant]
     Dosage: 11.25 MG
     Route: 058
     Dates: start: 20090101
  2. CASODEX [Concomitant]
     Dosage: 50 MG, QD
     Dates: start: 20090101
  3. ZOMETA [Suspect]
     Indication: METASTASES TO BONE
     Dosage: 4 MG, EVERY FOUR WEEKS
     Dates: start: 20090401

REACTIONS (2)
  - RETINAL VEIN OCCLUSION [None]
  - VISUAL ACUITY REDUCED [None]
